FAERS Safety Report 6257126-X (Version None)
Quarter: 2009Q3

REPORT INFORMATION
  Report Type: 
  Country: None (occurrence: None)
  Receive Date: 20090706
  Receipt Date: 20090625
  Transmission Date: 20100115
  Serious: Yes (Hospitalization)
  Sender: FDA-Public Use
  Company Number: B0582014A

PATIENT
  Sex: Male
  Weight: 68 kg

DRUGS (2)
  1. AVANDAMET [Suspect]
     Indication: DIABETES MELLITUS
     Dosage: 2000MG PER DAY
     Route: 048
     Dates: start: 20081215, end: 20090525
  2. ENAP [Concomitant]
     Dosage: 5MG PER DAY
     Route: 065
     Dates: start: 20081124

REACTIONS (3)
  - ASTHENIA [None]
  - CHEST PAIN [None]
  - DYSPNOEA EXERTIONAL [None]
